FAERS Safety Report 4378694-9 (Version None)
Quarter: 2004Q2

REPORT INFORMATION
  Report Type: 
  Country: None (occurrence: None)
  Receive Date: 20040610
  Receipt Date: 20040602
  Transmission Date: 20050107
  Serious: Yes (Hospitalization, Other)
  Sender: FDA-Public Use
  Company Number: GBWYE804804JUN04

PATIENT
  Age: 23 Year
  Sex: Male

DRUGS (10)
  1. RAPAMUNE [Suspect]
     Indication: IMMUNOSUPPRESSANT DRUG THERAPY
     Dosage: 6 MG 1X PER 1 DAY ORAL
     Route: 048
     Dates: start: 20030905
  2. ZENAPAX [Concomitant]
  3. MYCOPHENOLATE MOFETIL (MYCOPHENOLATE MOFETIL) [Concomitant]
  4. PREDNISOLONE [Suspect]
  5. NIFEDIPINE [Concomitant]
  6. ALFACALCIDOL (ALFACALCIDOL) [Concomitant]
  7. ASPIRIN [Concomitant]
  8. BISOPROLOL FUMARATE [Concomitant]
  9. LANSOPRAZOLE [Concomitant]
  10. CALCICHEW (CALCIUM CARBONATE) [Concomitant]

REACTIONS (2)
  - BLOOD CALCIUM DECREASED [None]
  - TREATMENT NONCOMPLIANCE [None]
